FAERS Safety Report 14790255 (Version 1)
Quarter: 2018Q2

REPORT INFORMATION
  Report Type: Spontaneous
  Country: US (occurrence: US)
  Receive Date: 20180423
  Receipt Date: 20180423
  Transmission Date: 20180711
  Serious: Yes (Other)
  Sender: FDA-Public Use
  Company Number: US-ROCHE-2111396

PATIENT
  Age: 70 Year
  Sex: Male

DRUGS (1)
  1. OCREVUS [Suspect]
     Active Substance: OCRELIZUMAB
     Indication: PRIMARY PROGRESSIVE MULTIPLE SCLEROSIS
     Dosage: SECOND DOSE: /FEB/2018
     Route: 065
     Dates: start: 201708

REACTIONS (5)
  - Fall [Unknown]
  - Gait disturbance [Unknown]
  - Pneumonia [Unknown]
  - Urinary tract infection [Unknown]
  - Asthenia [Unknown]
